FAERS Safety Report 19763339 (Version 2)
Quarter: 2021Q3

REPORT INFORMATION
  Report Type: Other
  Country: US (occurrence: US)
  Receive Date: 20210830
  Receipt Date: 20210831
  Transmission Date: 20211014
  Serious: Yes (Hospitalization, Other)
  Sender: FDA-Public Use
  Company Number: US-ROCHE-2895329

PATIENT
  Age: 72 Year
  Sex: Male
  Weight: 83.99 kg

DRUGS (1)
  1. OCREVUS [Suspect]
     Active Substance: OCRELIZUMAB
     Indication: PRIMARY PROGRESSIVE MULTIPLE SCLEROSIS
     Dosage: DATE OF TREATMENT: 20/FEB/2018, 21/JAN/2020,
     Route: 042

REACTIONS (4)
  - Sepsis [Unknown]
  - Blood urine present [Not Recovered/Not Resolved]
  - Dehydration [Unknown]
  - Spinal cord compression [Unknown]

NARRATIVE: CASE EVENT DATE: 202107
